FAERS Safety Report 21474467 (Version 1)
Quarter: 2022Q4

REPORT INFORMATION
  Report Type: Other
  Country: DE (occurrence: None)
  Receive Date: 20221018
  Receipt Date: 20221018
  Transmission Date: 20230113
  Serious: Yes (Death, Other)
  Sender: FDA-Public Use
  Company Number: DE-AMGEN-DEUSP2022134229

PATIENT
  Sex: Female

DRUGS (19)
  1. CELECOXIB [Suspect]
     Active Substance: CELECOXIB
     Indication: Medulloblastoma recurrent
     Dosage: DOSE REDUCED
     Route: 065
  2. CELECOXIB [Suspect]
     Active Substance: CELECOXIB
     Dosage: DOSE REDUCED
     Route: 065
  3. CYTARABINE [Suspect]
     Active Substance: CYTARABINE
     Indication: Medulloblastoma recurrent
     Dosage: DOSE REDUCED
     Route: 065
  4. CYTARABINE [Suspect]
     Active Substance: CYTARABINE
     Route: 065
  5. TOPOTECAN [Suspect]
     Active Substance: TOPOTECAN HYDROCHLORIDE
     Indication: Medulloblastoma recurrent
     Dosage: UNK
     Route: 065
  6. TOPOTECAN [Suspect]
     Active Substance: TOPOTECAN HYDROCHLORIDE
     Dosage: DOSE REDUCED
     Route: 065
  7. TOPOTECAN [Suspect]
     Active Substance: TOPOTECAN HYDROCHLORIDE
     Route: 065
  8. TEMOZOLOMIDE [Suspect]
     Active Substance: TEMOZOLOMIDE
     Indication: Medulloblastoma recurrent
     Dosage: REDUCED DOSE
     Route: 065
  9. TEMOZOLOMIDE [Suspect]
     Active Substance: TEMOZOLOMIDE
     Route: 065
  10. THALIDOMIDE [Suspect]
     Active Substance: THALIDOMIDE
     Indication: Medulloblastoma recurrent
     Route: 065
  11. BEVACIZUMAB [Suspect]
     Active Substance: BEVACIZUMAB
     Indication: Medulloblastoma
     Route: 042
  12. FENOFIBRATE [Suspect]
     Active Substance: FENOFIBRATE
     Indication: Medulloblastoma recurrent
     Dosage: REDUCED DOSE
     Route: 065
  13. FENOFIBRATE [Suspect]
     Active Substance: FENOFIBRATE
     Dosage: REDUCED DOSE
     Route: 065
  14. FENOFIBRATE [Concomitant]
     Active Substance: FENOFIBRATE
  15. THALIDOMIDE [Concomitant]
     Active Substance: THALIDOMIDE
  16. CELECOXIB [Concomitant]
     Active Substance: CELECOXIB
  17. TOPOTECAN [Concomitant]
     Active Substance: TOPOTECAN HYDROCHLORIDE
  18. TEMOZOLOMIDE [Concomitant]
     Active Substance: TEMOZOLOMIDE
  19. CYTARABINE [Concomitant]
     Active Substance: CYTARABINE

REACTIONS (9)
  - Infection [Unknown]
  - Malignant neoplasm progression [Not Recovered/Not Resolved]
  - Metastases to bone marrow [Not Recovered/Not Resolved]
  - Pain in extremity [Unknown]
  - Pancytopenia [Unknown]
  - Neck pain [Unknown]
  - Leukopenia [Unknown]
  - Pyrexia [Unknown]
  - Off label use [Fatal]
